FAERS Safety Report 8216487-2 (Version None)
Quarter: 2012Q1

REPORT INFORMATION
  Report Type: 
  Country: None (occurrence: None)
  Receive Date: 20120316
  Receipt Date: 20120306
  Transmission Date: 20120608
  Serious: Yes (Other)
  Sender: FDA-Public Use
  Company Number: US-ELI_LILLY_AND_COMPANY-US201203001871

PATIENT
  Sex: Male
  Weight: 130.61 kg

DRUGS (7)
  1. SIMVASTATIN [Concomitant]
     Dosage: 20 MG, QD
     Route: 048
  2. BYETTA [Suspect]
     Indication: TYPE 2 DIABETES MELLITUS
     Dosage: 5 UG, BID
     Route: 058
     Dates: start: 20100301
  3. BYETTA [Suspect]
     Dosage: 10 UG, BID
     Route: 058
     Dates: end: 20100501
  4. METFORMIN HYDROCHLORIDE [Concomitant]
     Indication: TYPE 2 DIABETES MELLITUS
     Dosage: 1000 MG, BID
     Route: 048
  5. MULTI-VITAMIN [Concomitant]
     Dosage: UNK, QD
     Route: 048
  6. BYETTA [Suspect]
     Dosage: 5 UG, BID
     Route: 058
     Dates: start: 20120207, end: 20120304
  7. ASPIRIN [Concomitant]
     Dosage: 325 MG, QD
     Route: 048

REACTIONS (4)
  - SWOLLEN TONGUE [None]
  - URTICARIA [None]
  - RASH GENERALISED [None]
  - SWELLING FACE [None]
